FAERS Safety Report 19197036 (Version 1)
Quarter: 2021Q2

REPORT INFORMATION
  Report Type: Spontaneous
  Country: IT (occurrence: IT)
  Receive Date: 20210430
  Receipt Date: 20210430
  Transmission Date: 20210717
  Serious: Yes (Other)
  Sender: FDA-Public Use
  Company Number: IT-AMGEN-ITASP2021061727

PATIENT
  Age: 23 Year
  Sex: Male

DRUGS (1)
  1. AMGEVITA [Suspect]
     Active Substance: ADALIMUMAB
     Indication: HIDRADENITIS
     Dosage: 80 MILLIGRAM
     Route: 058
     Dates: start: 20190430, end: 20210315

REACTIONS (2)
  - Demyelination [Unknown]
  - Visual impairment [Unknown]

NARRATIVE: CASE EVENT DATE: 20210402
